FAERS Safety Report 13386623 (Version 2)
Quarter: 2017Q2

REPORT INFORMATION
  Report Type: Spontaneous
  Country: US (occurrence: US)
  Receive Date: 20170330
  Receipt Date: 20170424
  Transmission Date: 20170830
  Serious: No
  Sender: FDA-Public Use
  Company Number: US-PFIZER INC-2017134656

PATIENT
  Age: 53 Year
  Sex: Male
  Weight: 139 kg

DRUGS (2)
  1. GELSYN 3 [Concomitant]
     Indication: ARTHRITIS
     Dosage: 16.8 MG/2 ML, WEEKLY X 3 WKS
     Route: 014
     Dates: start: 20170227, end: 20170316
  2. XELJANZ [Suspect]
     Active Substance: TOFACITINIB CITRATE
     Indication: ARTHRITIS
     Dosage: UNK
     Dates: start: 201702

REACTIONS (9)
  - Extraocular muscle disorder [Not Recovered/Not Resolved]
  - Insomnia [Not Recovered/Not Resolved]
  - Rhinorrhoea [Not Recovered/Not Resolved]
  - Body temperature decreased [Not Recovered/Not Resolved]
  - Throat irritation [Not Recovered/Not Resolved]
  - Viral upper respiratory tract infection [Not Recovered/Not Resolved]
  - Cough [Not Recovered/Not Resolved]
  - Product use in unapproved indication [Unknown]
  - Headache [Not Recovered/Not Resolved]

NARRATIVE: CASE EVENT DATE: 201702
